FAERS Safety Report 7052835-7 (Version None)
Quarter: 2010Q4

REPORT INFORMATION
  Report Type: 
  Country: None (occurrence: None)
  Receive Date: 20101008
  Receipt Date: 20100924
  Transmission Date: 20110411
  Serious: Yes (Other)
  Sender: FDA-Public Use
  Company Number: 2010MX005228

PATIENT
  Age: 44 Year
  Sex: Female
  Weight: 50 kg

DRUGS (7)
  1. PALONOSETRON HYDROCHLORIDE [Suspect]
     Indication: PROPHYLAXIS OF NAUSEA AND VOMITING
     Dosage: 0.25 MG, SINGLE, INTRAVENOUS
     Route: 042
     Dates: start: 20100828, end: 20100828
  2. EMEND [Concomitant]
  3. DOCETAXEL [Concomitant]
  4. RANITIDINE HCL [Concomitant]
  5. DIPHENHYDRAMINE HCL [Concomitant]
  6. DEXAMETHASONE [Concomitant]
  7. NEULASTA [Concomitant]

REACTIONS (3)
  - DECREASED APPETITE [None]
  - MUCOSAL INFLAMMATION [None]
  - PERIPHERAL SENSORIMOTOR NEUROPATHY [None]
